FAERS Safety Report 16222340 (Version 3)
Quarter: 2019Q2

REPORT INFORMATION
  Report Type: Spontaneous
  Country: HR (occurrence: HR)
  Receive Date: 20190422
  Receipt Date: 20190626
  Transmission Date: 20190711
  Serious: Yes (Other)
  Sender: FDA-Public Use
  Company Number: HR-ASTELLAS-2019US017070

PATIENT
  Age: 56 Year
  Sex: Female

DRUGS (4)
  1. ADVAGRAF [Suspect]
     Active Substance: TACROLIMUS
     Route: 065
  2. ADVAGRAF [Suspect]
     Active Substance: TACROLIMUS
     Indication: AUTOIMMUNE HEPATITIS
     Route: 065
     Dates: start: 20170714
  3. DECORTIN [Concomitant]
     Active Substance: PREDNISONE
     Indication: AUTOIMMUNE HEPATITIS
     Dosage: UNK UNK, UNKNOWN FREQ.
     Route: 065
     Dates: start: 201609
  4. BUDESONIDE. [Concomitant]
     Active Substance: BUDESONIDE
     Indication: PRODUCT USED FOR UNKNOWN INDICATION
     Dosage: UNK UNK, UNKNOWN FREQ.
     Route: 065
     Dates: start: 201702, end: 20171115

REACTIONS (7)
  - Arthralgia [Recovered/Resolved]
  - Hepatic fibrosis [Unknown]
  - Dactylitis [Recovered/Resolved]
  - Hepatotoxicity [Unknown]
  - Product use in unapproved indication [Unknown]
  - Psoriatic arthropathy [Recovered/Resolved]
  - Drug interaction [Unknown]
